FAERS Safety Report 9306971 (Version 1)
Quarter: 2013Q2

REPORT INFORMATION
  Report Type: Spontaneous
  Country: US (occurrence: US)
  Receive Date: 20130523
  Receipt Date: 20130523
  Transmission Date: 20140414
  Serious: No
  Sender: FDA-Public Use
  Company Number: US-AMGEN-USASP2013016413

PATIENT
  Sex: Male

DRUGS (2)
  1. ARANESP [Suspect]
     Indication: RENAL FAILURE CHRONIC
     Dosage: 25 UNK, UNK
     Dates: start: 2010
  2. ARANESP [Suspect]
     Indication: HAEMOGLOBIN DECREASED

REACTIONS (2)
  - Haemoglobin decreased [Recovered/Resolved]
  - Blood pressure increased [Unknown]
